FAERS Safety Report 9403465 (Version 1)
Quarter: 2013Q3

REPORT INFORMATION
  Report Type: Spontaneous
  Country: GB (occurrence: GB)
  Receive Date: 20130716
  Receipt Date: 20130716
  Transmission Date: 20140515
  Serious: Yes (Other)
  Sender: FDA-Public Use
  Company Number: GB-MERCK-1307GBR007330

PATIENT
  Age: 65 Year
  Sex: Male
  Weight: 97 kg

DRUGS (18)
  1. SITAGLIPTIN PHOSPHATE [Suspect]
     Dosage: 100 MG, UNK
     Route: 048
     Dates: start: 20091229, end: 20130623
  2. ADCAL-D3 [Concomitant]
     Dosage: 1 DF, BID
     Route: 048
  3. ATORVASTATIN [Concomitant]
     Dosage: 80 MG, UNK
     Route: 048
  4. ACETAMINOPHEN (+) CODEINE PHOSPHATE [Concomitant]
     Route: 048
  5. CODEINE [Concomitant]
     Dosage: 30 MG AS NECESSARY
     Route: 048
  6. ENALAPRIL MALEATE [Concomitant]
     Dosage: 20 MG, UNK
     Route: 048
  7. FLOXACILLIN [Concomitant]
     Dosage: 500 MG, QID
     Route: 048
     Dates: start: 20130404
  8. GABAPENTIN [Concomitant]
     Dosage: 300 MG, TID
     Route: 048
  9. GAVISCON ADVANCE [Concomitant]
     Indication: DYSPEPSIA
     Dosage: 10 ML, AS NECESSARY
     Route: 048
  10. GLICLAZIDE [Concomitant]
     Dosage: 160 MG, BID
     Route: 048
  11. NITROGLYCERIN [Concomitant]
     Dosage: 400 MICROGRAM, UNK
     Route: 060
  12. LEVOTHYROXINE SODIUM [Concomitant]
     Dosage: 200 MICROGRAM, QD
     Route: 048
  13. METFORMIN [Concomitant]
     Dosage: 1 G, BID
     Route: 048
  14. RANITIDINE [Concomitant]
     Dosage: 150 MG, BID
     Route: 048
  15. ALBUTEROL [Concomitant]
     Dosage: 100 MICROGRAM AS NECESSARY INHLATION
     Route: 055
  16. SILDENAFIL CITRATE [Concomitant]
     Dosage: 100 MG, AS NECESSARY
     Route: 048
  17. SOTALOL HYDROCHLORIDE [Concomitant]
     Dosage: 80 MG, BID AS NECESSARY
     Route: 048
  18. WARFARIN [Concomitant]
     Dosage: 1 DF AS NECESSARY
     Route: 048

REACTIONS (1)
  - Thyroid cancer [Recovered/Resolved]
